FAERS Safety Report 7343349-5 (Version None)
Quarter: 2011Q1

REPORT INFORMATION
  Report Type: 
  Country: None (occurrence: None)
  Receive Date: 20110310
  Receipt Date: 20110303
  Transmission Date: 20110831
  Serious: Yes (Hospitalization, Other)
  Sender: FDA-Public Use
  Company Number: US-AMGEN-USASP2011001369

PATIENT
  Age: 50 Year
  Sex: Male

DRUGS (2)
  1. ENBREL [Suspect]
     Indication: CONGENITAL CYSTIC KIDNEY DISEASE
  2. ENBREL [Suspect]
     Indication: ANKYLOSING SPONDYLITIS
     Dosage: 50 MG, QWK
     Dates: start: 20040301

REACTIONS (15)
  - ANKLE OPERATION [None]
  - INJECTION SITE PRURITUS [None]
  - RENAL CYST [None]
  - LOSS OF CONSCIOUSNESS [None]
  - VENTRICULAR HYPERTROPHY [None]
  - INJECTION SITE INDURATION [None]
  - OSTEOARTHRITIS [None]
  - ANKYLOSING SPONDYLITIS [None]
  - CONGENITAL CYSTIC KIDNEY DISEASE [None]
  - GINGIVAL INFECTION [None]
  - INJECTION SITE PAIN [None]
  - TOE OPERATION [None]
  - ARRHYTHMIA [None]
  - DEPRESSION [None]
  - DENTAL CARIES [None]
